FAERS Safety Report 13770720 (Version 1)
Quarter: 2017Q3

REPORT INFORMATION
  Report Type: Spontaneous
  Country: US (occurrence: US)
  Receive Date: 20170720
  Receipt Date: 20170720
  Transmission Date: 20171127
  Serious: Yes (Other)
  Sender: FDA-Public Use
  Company Number: None

PATIENT
  Age: 68 Year
  Sex: Female

DRUGS (1)
  1. IBRANCE [Suspect]
     Active Substance: PALBOCICLIB
     Indication: BREAST CANCER
     Dosage: 21 DAYS EVERY 28 DAYS
     Route: 048
     Dates: start: 20160617

REACTIONS (5)
  - Weight increased [None]
  - Mouth haemorrhage [None]
  - Stomatitis [None]
  - Oral pain [None]
  - Dysphonia [None]

NARRATIVE: CASE EVENT DATE: 20170718
